FAERS Safety Report 6185134-6 (Version None)
Quarter: 2009Q2

REPORT INFORMATION
  Report Type: 
  Country: None (occurrence: None)
  Receive Date: 20090511
  Receipt Date: 20090505
  Transmission Date: 20091009
  Serious: Yes (Hospitalization)
  Sender: FDA-Public Use
  Company Number: AU-PFIZER INC-2009162438

PATIENT
  Age: 19 Year

DRUGS (5)
  1. ZAVEDOS [Suspect]
     Indication: ACUTE MYELOID LEUKAEMIA
     Dosage: 17 MG
  2. CYTARABINE [Suspect]
     Indication: ACUTE MYELOID LEUKAEMIA
     Dosage: 5.5 G
  3. ETOPOSIDE [Suspect]
     Indication: ACUTE MYELOID LEUKAEMIA
     Dosage: 140 MG
  4. PALIFERMIN [Suspect]
     Indication: ACUTE MYELOID LEUKAEMIA
     Dosage: 4.49 MG
  5. PEGFILGRASTIM [Suspect]
     Indication: ACUTE MYELOID LEUKAEMIA
     Dosage: 6 MG

REACTIONS (2)
  - MULTI-ORGAN FAILURE [None]
  - NEUTROPENIC COLITIS [None]
